FAERS Safety Report 7116074-3 (Version None)
Quarter: 2010Q4

REPORT INFORMATION
  Report Type: 
  Country: None (occurrence: None)
  Receive Date: 20101118
  Receipt Date: 20101118
  Transmission Date: 20110411
  Serious: Yes (Hospitalization)
  Sender: FDA-Public Use
  Company Number: None

PATIENT
  Sex: Female
  Weight: 37.6486 kg

DRUGS (9)
  1. RECLAST [Suspect]
     Indication: OSTEOPOROSIS
     Dosage: 5 MG/100 ML ONCE IV
     Route: 042
     Dates: start: 20101026
  2. PHENYTOIN [Concomitant]
  3. VIT D [Concomitant]
  4. TIZANIDINE [Concomitant]
  5. SIMETHICONE [Concomitant]
  6. PREVACID [Concomitant]
  7. CALCIUM CARBONATE [Concomitant]
  8. LEVOTHYROXINE SODIUM [Concomitant]
  9. MULTI-VITAMINS [Concomitant]

REACTIONS (3)
  - DYSPNOEA [None]
  - PYREXIA [None]
  - TACHYCARDIA [None]
